FAERS Safety Report 15523950 (Version 2)
Quarter: 2018Q4

REPORT INFORMATION
  Report Type: Spontaneous
  Country: US (occurrence: US)
  Receive Date: 20181018
  Receipt Date: 20181023
  Transmission Date: 20190205
  Serious: Yes (Other)
  Sender: FDA-Public Use
  Company Number: US-UCBSA-2018046103

PATIENT
  Age: 48 Year
  Sex: Male

DRUGS (5)
  1. METHYLPREDNISOLONE. [Concomitant]
     Active Substance: METHYLPREDNISOLONE
     Indication: MYOCLONUS
     Dosage: UNKNOWN DOSE
  2. IG GAMMA [Concomitant]
     Indication: MYOCLONUS
     Dosage: UNKNOWN DOSE
     Route: 042
  3. LEVETIRACETAM. [Suspect]
     Active Substance: LEVETIRACETAM
     Indication: MYOCLONUS
     Dosage: HIGH DOSES
  4. CICLOFOSFAMIDA [Concomitant]
     Active Substance: CYCLOPHOSPHAMIDE
     Indication: MYOCLONUS
     Dosage: UNKNOWN DOSE
  5. LEVETIRACETAM. [Suspect]
     Active Substance: LEVETIRACETAM
     Indication: OFF LABEL USE

REACTIONS (2)
  - Myoclonus [Recovering/Resolving]
  - Off label use [Unknown]
